FAERS Safety Report 9214399 (Version 3)
Quarter: 2013Q2

REPORT INFORMATION
  Report Type: Spontaneous
  Country: JP (occurrence: JP)
  Receive Date: 20130405
  Receipt Date: 20130515
  Transmission Date: 20140414
  Serious: Yes (Other)
  Sender: FDA-Public Use
  Company Number: JP-ROCHE-1210468

PATIENT
  Age: 74 Year
  Sex: Male
  Weight: 63 kg

DRUGS (11)
  1. AVASTIN [Suspect]
     Indication: NON-SMALL CELL LUNG CANCER METASTATIC
     Route: 041
     Dates: start: 20110113, end: 20110324
  2. AVASTIN [Suspect]
     Indication: NON-SMALL CELL LUNG CANCER METASTATIC
     Route: 041
     Dates: start: 20110728, end: 20111110
  3. CARBOPLATIN [Concomitant]
     Indication: NON-SMALL CELL LUNG CANCER METASTATIC
     Route: 041
     Dates: start: 20110113, end: 20110407
  4. PACLITAXEL [Concomitant]
     Indication: NON-SMALL CELL LUNG CANCER METASTATIC
     Route: 041
     Dates: start: 20110113, end: 20110421
  5. DECADRON [Concomitant]
     Indication: NAUSEA
     Route: 041
     Dates: start: 20110113, end: 20110421
  6. DECADRON [Concomitant]
     Indication: HYPERSENSITIVITY
     Route: 041
     Dates: start: 20110113, end: 20110421
  7. GASTER [Concomitant]
     Indication: HYPERSENSITIVITY
     Route: 041
     Dates: start: 20110113, end: 20110421
  8. POLARAMINE [Concomitant]
     Indication: HYPERSENSITIVITY
     Route: 041
     Dates: start: 20110113, end: 20110421
  9. GRANISETRON [Concomitant]
     Indication: NAUSEA
     Route: 041
     Dates: start: 20110113, end: 20110421
  10. PEMETREXED DISODIUM [Concomitant]
     Indication: NON-SMALL CELL LUNG CANCER METASTATIC
     Dosage: DOSAGE IS UNCERTAIN.
     Route: 041
  11. TS-1 [Concomitant]
     Indication: NON-SMALL CELL LUNG CANCER METASTATIC
     Dosage: DAYS 1-14
     Route: 048

REACTIONS (1)
  - Pneumothorax [Recovering/Resolving]
